FAERS Safety Report 23266553 (Version 1)
Quarter: 2023Q4

REPORT INFORMATION
  Report Type: Report from Study
  Country: US (occurrence: US)
  Receive Date: 20231206
  Receipt Date: 20231206
  Transmission Date: 20240109
  Serious: Yes (Other)
  Sender: FDA-Public Use
  Company Number: US-ABBVIE-5482936

PATIENT
  Sex: Male

DRUGS (1)
  1. VENCLEXTA [Suspect]
     Active Substance: VENETOCLAX
     Indication: Chronic lymphocytic leukaemia
     Dosage: TAKE 2 TABLETS BY MOUTH ONCE DAILY WITH FOOD AND A FULL GLASS OF WATER?FORM STRENGTH- 100 MG
     Route: 048
     Dates: end: 20231004

REACTIONS (4)
  - Haemorrhage [Recovered/Resolved]
  - Laboratory test abnormal [Unknown]
  - Full blood count decreased [Recovered/Resolved]
  - Red blood cell count decreased [Unknown]
